FAERS Safety Report 10567869 (Version 1)
Quarter: 2014Q4

REPORT INFORMATION
  Report Type: Spontaneous
  Country: US (occurrence: None)
  Receive Date: 20141105
  Receipt Date: 20141105
  Transmission Date: 20150529
  Serious: Yes (Disabling)
  Sender: FDA-Public Use
  Company Number: None

PATIENT
  Age: 50 Year
  Sex: Female
  Weight: 61.24 kg

DRUGS (1)
  1. LEVOFLOXACIN 50MG MACLEODS PHARMACEUTICALS [Suspect]
     Active Substance: LEVOFLOXACIN
     Indication: SINUSITIS
     Dosage: 1 PILL TWICE DAILY, TAKEN BY MOUTH
     Route: 048
     Dates: start: 20140313, end: 20140327

REACTIONS (2)
  - Movement disorder [None]
  - Musculoskeletal pain [None]

NARRATIVE: CASE EVENT DATE: 20140331
